FAERS Safety Report 19882319 (Version 1)
Quarter: 2021Q3

REPORT INFORMATION
  Report Type: Spontaneous
  Country: US (occurrence: US)
  Receive Date: 20210924
  Receipt Date: 20210924
  Transmission Date: 20211014
  Serious: No
  Sender: FDA-Public Use
  Company Number: US-GE HEALTHCARE LIFE SCIENCES-2021CSU003816

PATIENT
  Sex: Male

DRUGS (4)
  1. MYOVIEW [Suspect]
     Active Substance: TECHNETIUM TC-99M TETROFOSMIN
     Indication: SCAN MYOCARDIAL PERFUSION
     Dosage: 353.4 MBQ (11.78 MCI), SINGLE
     Route: 065
     Dates: start: 20210727, end: 20210727
  2. TECHNETIUM TC 99M [Concomitant]
     Active Substance: TECHNETIUM TC-99M
     Indication: SCAN MYOCARDIAL PERFUSION
     Dosage: UNK, SINGLE
     Route: 065
     Dates: start: 20210727, end: 20210727
  3. MYOVIEW [Suspect]
     Active Substance: TECHNETIUM TC-99M TETROFOSMIN
     Indication: PRODUCT USED FOR UNKNOWN INDICATION
  4. TECHNETIUM TC 99M [Concomitant]
     Active Substance: TECHNETIUM TC-99M
     Indication: PRODUCT USED FOR UNKNOWN INDICATION

REACTIONS (2)
  - Drug ineffective [Recovered/Resolved]
  - No adverse event [Recovered/Resolved]

NARRATIVE: CASE EVENT DATE: 20210727
